FAERS Safety Report 4414956-4 (Version None)
Quarter: 2004Q3

REPORT INFORMATION
  Report Type: 
  Country: None (occurrence: None)
  Receive Date: 20040803
  Receipt Date: 20040803
  Transmission Date: 20050211
  Serious: Yes (Other)
  Sender: FDA-Public Use
  Company Number: None

PATIENT
  Age: 28 Year
  Sex: Female
  Weight: 145.151 kg

DRUGS (2)
  1. TOPAMAX [Suspect]
     Indication: WEIGHT DECREASED
     Dosage: 200 MG BID PO
     Route: 048
     Dates: start: 20040501
  2. BIRTH CONTROL [Concomitant]

REACTIONS (1)
  - ALOPECIA [None]
